FAERS Safety Report 7272231-7 (Version None)
Quarter: 2011Q1

REPORT INFORMATION
  Report Type: 
  Country: None (occurrence: None)
  Receive Date: 20110203
  Receipt Date: 20110121
  Transmission Date: 20110831
  Serious: Yes (Other)
  Sender: FDA-Public Use
  Company Number: PHFR2010GB01704

PATIENT
  Sex: Female

DRUGS (2)
  1. HYOSCINE HBR HYT [Concomitant]
     Dosage: 300 UG, QD
     Dates: start: 20040101, end: 20100101
  2. CLOZARIL [Suspect]
     Dosage: 250 MG, QD
     Route: 048
     Dates: start: 20041014, end: 20100901

REACTIONS (3)
  - CARDIOMYOPATHY [None]
  - ELECTROCARDIOGRAM ABNORMAL [None]
  - ELECTROCARDIOGRAM P WAVE ABNORMAL [None]
